FAERS Safety Report 8848655 (Version 1)
Quarter: 2012Q4

REPORT INFORMATION
  Report Type: 
  Country: FR (occurrence: FR)
  Receive Date: 20121018
  Receipt Date: 20121018
  Transmission Date: 20130627
  Serious: Yes (Hospitalization)
  Sender: FDA-Public Use
  Company Number: FR-ASTRAZENECA-2012SE78719

PATIENT
  Age: 57 Year
  Sex: Male

DRUGS (15)
  1. INEXIUM [Suspect]
     Route: 048
     Dates: start: 20120814, end: 20120911
  2. VANCOMYCINE [Suspect]
     Route: 042
     Dates: start: 20120820, end: 20120914
  3. CIPROFLOXACINE [Suspect]
     Route: 048
     Dates: start: 20120902, end: 20120914
  4. LYRICA [Suspect]
     Route: 048
     Dates: start: 20120908, end: 20120911
  5. GENTAMICINE [Suspect]
     Route: 042
     Dates: start: 20120817, end: 20120831
  6. ACUPAN [Suspect]
     Dates: start: 20120907, end: 20120910
  7. BURINEX [Suspect]
  8. KETAMINE [Suspect]
     Route: 042
     Dates: start: 20120907, end: 20120910
  9. COUMADINE [Concomitant]
  10. LOVENOX [Concomitant]
     Dates: start: 20120814
  11. DAFALGAN [Concomitant]
     Dates: start: 20120814
  12. IMOVANE [Concomitant]
     Dates: start: 20120814
  13. ACTISKENAN [Concomitant]
     Dates: start: 20120831
  14. TOPALGIC [Concomitant]
     Dates: start: 20120904
  15. SKENAN [Concomitant]
     Dates: start: 20120910

REACTIONS (3)
  - Agranulocytosis [Recovered/Resolved with Sequelae]
  - Leukopenia [Unknown]
  - Localised infection [Unknown]
